FAERS Safety Report 5422496-9 (Version None)
Quarter: 2007Q3

REPORT INFORMATION
  Report Type: 
  Country: None (occurrence: None)
  Receive Date: 20070822
  Receipt Date: 20070822
  Transmission Date: 20080115
  Serious: Yes (Other)
  Sender: FDA-Public Use
  Company Number: A0673214A

PATIENT

DRUGS (2)
  1. ALLI [Suspect]
     Indication: WEIGHT DECREASED
     Route: 048
  2. WATER PILL [Concomitant]

REACTIONS (4)
  - BLOOD POTASSIUM DECREASED [None]
  - DIZZINESS [None]
  - PALPITATIONS [None]
  - SYNCOPE [None]
